FAERS Safety Report 6083709-6 (Version None)
Quarter: 2009Q1

REPORT INFORMATION
  Report Type: 
  Country: None (occurrence: None)
  Receive Date: 20090219
  Receipt Date: 20090209
  Transmission Date: 20090719
  Serious: Yes (Other)
  Sender: FDA-Public Use
  Company Number: JP-PFIZER INC-2009168749

PATIENT

DRUGS (6)
  1. REVATIO [Suspect]
     Indication: PULMONARY HYPERTENSION
     Dosage: 5 MG, 4X/DAY
     Route: 048
     Dates: start: 20090106, end: 20090113
  2. MODACIN [Concomitant]
     Route: 042
  3. VICCILIN [Concomitant]
  4. FLOLAN [Concomitant]
     Route: 042
  5. MORPHINE HYDROCHLORIDE [Concomitant]
  6. MUSCULAX [Concomitant]
     Route: 042

REACTIONS (1)
  - HEPATIC FUNCTION ABNORMAL [None]
